FAERS Safety Report 21561972 (Version 1)
Quarter: 2022Q4

REPORT INFORMATION
  Report Type: Spontaneous
  Country: CN (occurrence: CN)
  Receive Date: 20221107
  Receipt Date: 20221107
  Transmission Date: 20230113
  Serious: Yes (Other)
  Sender: FDA-Public Use
  Company Number: CN-PFIZER INC-PV202200096633

PATIENT
  Age: 53 Year
  Sex: Female
  Weight: 63 kg

DRUGS (2)
  1. METHOTREXATE SODIUM [Suspect]
     Active Substance: METHOTREXATE SODIUM
     Indication: Acute lymphocytic leukaemia
     Dosage: 1500.000 MG, 1X/DAY
     Route: 041
     Dates: start: 20221012, end: 20221012
  2. CYTARABINE [Concomitant]
     Active Substance: CYTARABINE
     Indication: Acute lymphocytic leukaemia
     Dosage: 1500.000 MG, 2X/DAY
     Route: 041
     Dates: start: 20221012, end: 20221014

REACTIONS (4)
  - Mucosal ulceration [Unknown]
  - Blood blister [Unknown]
  - Mucosal toxicity [Unknown]
  - Fungal infection [Unknown]

NARRATIVE: CASE EVENT DATE: 20221025
